FAERS Safety Report 9519156 (Version 1)
Quarter: 2013Q1

REPORT INFORMATION
  Report Type: Spontaneous
  Country: US (occurrence: None)
  Receive Date: 20130305
  Receipt Date: 20130305
  Transmission Date: 20140127
  Serious: Yes (Other)
  Sender: FDA-Public Use
  Company Number: 163-21880-12033040

PATIENT
  Age: 74 Year
  Sex: Female

DRUGS (1)
  1. REVLIMID [Suspect]
     Indication: PLASMA CELL MYELOMA
     Dosage: 25 MG, 21 IN 28 D, PO
     Route: 048
     Dates: start: 20120228

REACTIONS (8)
  - Fatigue [None]
  - Balance disorder [None]
  - Disturbance in attention [None]
  - Gait disturbance [None]
  - Hyperglycaemia [None]
  - Vision blurred [None]
  - Tremor [None]
  - Adverse drug reaction [None]
